FAERS Safety Report 9478694 (Version 1)
Quarter: 2013Q3

REPORT INFORMATION
  Report Type: Report from Study
  Country: US (occurrence: US)
  Receive Date: 20130827
  Receipt Date: 20130827
  Transmission Date: 20140515
  Serious: Yes (Hospitalization)
  Sender: FDA-Public Use
  Company Number: US-ABBOTT-13P-163-1135590-00

PATIENT
  Age: 44 Year
  Sex: Male

DRUGS (8)
  1. HUMIRA [Suspect]
     Indication: PSORIATIC ARTHROPATHY
     Dates: start: 20130718
  2. PREDNISONE [Concomitant]
     Indication: PRODUCT USED FOR UNKNOWN INDICATION
  3. OXYCOTIN [Concomitant]
     Indication: PRODUCT USED FOR UNKNOWN INDICATION
  4. FOLIC ACID [Concomitant]
     Indication: PRODUCT USED FOR UNKNOWN INDICATION
  5. LORAZEPAM [Concomitant]
     Indication: PRODUCT USED FOR UNKNOWN INDICATION
  6. PROMETHAZINE [Concomitant]
     Indication: PRODUCT USED FOR UNKNOWN INDICATION
  7. ZANAFLEX [Concomitant]
     Indication: PRODUCT USED FOR UNKNOWN INDICATION
  8. SEROQUEL [Concomitant]
     Indication: INSOMNIA
     Dosage: AT BEDTIME

REACTIONS (4)
  - Migraine [Recovered/Resolved]
  - Pyrexia [Recovered/Resolved]
  - Pneumonia [Recovering/Resolving]
  - Dehydration [Recovering/Resolving]
